FAERS Safety Report 19609251 (Version 1)
Quarter: 2021Q3

REPORT INFORMATION
  Report Type: Spontaneous
  Country: CA (occurrence: CA)
  Receive Date: 20210726
  Receipt Date: 20210726
  Transmission Date: 20211014
  Serious: Yes (Other)
  Sender: FDA-Public Use
  Company Number: CA-JNJFOC-20210743512

PATIENT
  Age: 63 Year
  Sex: Female

DRUGS (11)
  1. ENBREL [Concomitant]
     Active Substance: ETANERCEPT
     Route: 058
  2. NAPROXEN. [Concomitant]
     Active Substance: NAPROXEN
     Route: 065
  3. HYDROXYCHLOROQUINE [Concomitant]
     Active Substance: HYDROXYCHLOROQUINE
     Route: 065
  4. INFLIXIMAB, RECOMBINANT [Suspect]
     Active Substance: INFLIXIMAB
     Indication: RHEUMATOID ARTHRITIS
     Route: 042
  5. INFLIXIMAB, RECOMBINANT [Suspect]
     Active Substance: INFLIXIMAB
     Indication: PSORIATIC ARTHROPATHY
     Route: 042
  6. HYDROXYCHLOROQUINE [Concomitant]
     Active Substance: HYDROXYCHLOROQUINE
  7. CHLOROQUINE. [Concomitant]
     Active Substance: CHLOROQUINE
     Route: 065
  8. ERGOCALCIFEROL. [Concomitant]
     Active Substance: ERGOCALCIFEROL
     Route: 065
  9. FOLIC ACID. [Concomitant]
     Active Substance: FOLIC ACID
     Route: 065
  10. METHOTREXATE. [Concomitant]
     Active Substance: METHOTREXATE
     Route: 058
  11. PANTOPRAZOLE [Concomitant]
     Active Substance: PANTOPRAZOLE
     Route: 065

REACTIONS (9)
  - Injury [Unknown]
  - Fracture [Unknown]
  - Lacrimal disorder [Unknown]
  - Ingrowing nail [Unknown]
  - Productive cough [Unknown]
  - Inappropriate schedule of product administration [Unknown]
  - Diabetes mellitus [Unknown]
  - Off label use [Unknown]
  - C-reactive protein increased [Unknown]
